FAERS Safety Report 20975986 (Version 1)
Quarter: 2022Q2

REPORT INFORMATION
  Report Type: Spontaneous
  Country: US (occurrence: None)
  Receive Date: 20220617
  Receipt Date: 20220617
  Transmission Date: 20220720
  Serious: No
  Sender: FDA-Public Use
  Company Number: None

PATIENT
  Sex: Male
  Weight: 72.57 kg

DRUGS (21)
  1. ABIRATERONE ACETATE [Suspect]
     Active Substance: ABIRATERONE ACETATE
     Indication: Prostate cancer
     Dosage: FREQUENCY : DAILY;?
     Route: 048
     Dates: start: 202205
  2. ACETAMINOPHEN [Concomitant]
  3. ALPHAGAN P [Concomitant]
     Active Substance: BRIMONIDINE TARTRATE
  4. BICALUTAMIDE [Concomitant]
     Active Substance: BICALUTAMIDE
  5. Calcium Carbonate-Vitamin D-Min [Concomitant]
  6. clonidine HCI [Concomitant]
  7. Flonase Allergy Relief Nasal Suspen [Concomitant]
  8. FOLIC ACID [Concomitant]
     Active Substance: FOLIC ACID
  9. LATANOPROST [Concomitant]
     Active Substance: LATANOPROST
  10. LUPRON DEPOT [Concomitant]
     Active Substance: LEUPROLIDE ACETATE
  11. NORVASC [Concomitant]
     Active Substance: AMLODIPINE BESYLATE
  12. POLYETHYLENE GLYCOL [Concomitant]
     Active Substance: POLYETHYLENE GLYCOL
  13. PREDNISONE [Concomitant]
     Active Substance: PREDNISONE
  14. Retaine CMC Ophthalmic Solution [Concomitant]
  15. SENNA [Concomitant]
     Active Substance: SENNA LEAF\SENNOSIDES\SENNOSIDES A AND B
  16. SIMVASTATIN [Concomitant]
     Active Substance: SIMVASTATIN
  17. Sotalol HCI [Concomitant]
  18. VITAMIN D3 [Concomitant]
     Active Substance: CHOLECALCIFEROL
  19. ZOFRAN [Concomitant]
     Active Substance: ONDANSETRON HYDROCHLORIDE
  20. ZYRTEC [Concomitant]
     Active Substance: CETIRIZINE HYDROCHLORIDE
  21. ZYTIGA [Concomitant]
     Active Substance: ABIRATERONE ACETATE

REACTIONS (2)
  - Deafness [None]
  - Urinary tract infection [None]
